FAERS Safety Report 25481746 (Version 1)
Quarter: 2025Q2

REPORT INFORMATION
  Report Type: Spontaneous
  Country: US (occurrence: US)
  Receive Date: 20250626
  Receipt Date: 20250626
  Transmission Date: 20250717
  Serious: No
  Sender: Kenvue
  Company Number: US-KENVUE-20250609142

PATIENT

DRUGS (4)
  1. IBUPROFEN [Suspect]
     Active Substance: IBUPROFEN
     Indication: Arthritis
     Route: 065
  2. TYLENOL PROACTIVE SUPPORT MUSCLE AND JOINT CAPLET 30CT [Concomitant]
     Indication: Arthritis
     Route: 065
  3. Unspecified OTC pain medication [Concomitant]
     Indication: Pain
     Route: 065
  4. Unspecified numbing cream [Concomitant]
     Indication: Product used for unknown indication
     Route: 065

REACTIONS (2)
  - Product use in unapproved indication [Unknown]
  - Product administered to patient of inappropriate age [Unknown]
